FAERS Safety Report 9413772 (Version 1)
Quarter: 2013Q3

REPORT INFORMATION
  Report Type: Spontaneous
  Country: US (occurrence: US)
  Receive Date: 20130723
  Receipt Date: 20130723
  Transmission Date: 20140515
  Serious: No
  Sender: FDA-Public Use
  Company Number: US-B.I. PHARMACEUTICALS,INC./RIDGEFIELD-2013-BI-21207BP

PATIENT
  Age: 55 Year
  Sex: Female

DRUGS (4)
  1. ZANTAC COOL MINT (TABLETS) [Suspect]
     Indication: DYSPEPSIA
     Dosage: STRENGTH: 150 MG;
     Route: 048
     Dates: start: 2013
  2. ZANTAC COOL MINT (TABLETS) [Suspect]
     Indication: DYSPEPSIA
  3. ZANTAC (RANITIDINE HYDROCHLORIDE) [Suspect]
     Indication: DYSPEPSIA
     Dosage: STRENGTH: 150 MG;
     Route: 048
     Dates: start: 2005
  4. ZANTAC (RANITIDINE HYDROCHLORIDE) [Suspect]
     Indication: DYSPEPSIA

REACTIONS (1)
  - Lip swelling [Not Recovered/Not Resolved]
